FAERS Safety Report 6771497-7 (Version None)
Quarter: 2010Q2

REPORT INFORMATION
  Report Type: 
  Country: None (occurrence: None)
  Receive Date: 20100616
  Receipt Date: 20100604
  Transmission Date: 20101027
  Serious: Yes (Death, Hospitalization, Other)
  Sender: FDA-Public Use
  Company Number: US-GENZYME-MOZO-1000328

PATIENT
  Age: 38 Year
  Sex: Female

DRUGS (25)
  1. MOZOBIL [Suspect]
     Indication: HAEMATOPOIETIC STEM CELL MOBILISATION
     Dosage: 17112 MCG, QD
     Dates: start: 20100422, end: 20100425
  2. MOZOBIL [Suspect]
     Indication: CHRONIC MYELOID LEUKAEMIA
  3. NEUPOGEN [Concomitant]
     Indication: HAEMATOPOIETIC STEM CELL MOBILISATION
     Dosage: 780 MCG, QD
     Dates: start: 20100420, end: 20100425
  4. NEUPOGEN [Concomitant]
     Indication: CHRONIC MYELOID LEUKAEMIA
  5. FLUDARABINE [Concomitant]
     Indication: DRUG USE FOR UNKNOWN INDICATION
     Dosage: 80 MG, QD
     Dates: start: 20100423, end: 20100426
  6. BUSULFEX [Concomitant]
     Indication: DRUG USE FOR UNKNOWN INDICATION
     Dosage: 230 MG, QD
     Dates: start: 20100423, end: 20100426
  7. THYMOGLOBULIN [Concomitant]
     Indication: BONE MARROW CONDITIONING REGIMEN
     Dosage: 46 MG, ONCE
     Route: 042
     Dates: start: 20100426, end: 20100426
  8. THYMOGLOBULIN [Concomitant]
     Dosage: 138 MG, ONCE
     Route: 042
     Dates: start: 20100427, end: 20100427
  9. THYMOGLOBULIN [Concomitant]
     Dosage: 184 MG, ONCE
     Route: 042
     Dates: start: 20100428, end: 20100428
  10. COMBIVENT [Concomitant]
     Indication: DRUG USE FOR UNKNOWN INDICATION
     Dosage: UNK
     Dates: start: 20100503, end: 20100505
  11. ACYCLOVIR [Concomitant]
     Indication: DRUG USE FOR UNKNOWN INDICATION
     Dosage: 400 MG, Q12HR
     Route: 042
     Dates: start: 20100503, end: 20100505
  12. PHYTONADIONE [Concomitant]
     Indication: DRUG USE FOR UNKNOWN INDICATION
     Dosage: UNK
     Dates: start: 20100503
  13. CEFEPIME [Concomitant]
     Indication: DRUG USE FOR UNKNOWN INDICATION
     Dosage: 2 G, UNK
     Route: 042
     Dates: start: 20100503
  14. VANCOMYCIN [Concomitant]
     Indication: DRUG USE FOR UNKNOWN INDICATION
     Dosage: 1 MG, UNK
     Route: 042
     Dates: start: 20100503
  15. LEVETIRACETAM [Concomitant]
     Indication: DRUG USE FOR UNKNOWN INDICATION
     Dosage: 500 MG, Q12HR
     Dates: start: 20100504
  16. PHENYLEPHRINE [Concomitant]
     Indication: DRUG USE FOR UNKNOWN INDICATION
     Dosage: 180 UNK, UNK
     Route: 042
     Dates: start: 20100504, end: 20100504
  17. PHENYLEPHRINE [Concomitant]
     Dosage: 200 UNK, UNK
     Route: 042
     Dates: start: 20100504, end: 20100504
  18. PHENYLEPHRINE [Concomitant]
     Dosage: 225 UNK, UNK
     Route: 042
     Dates: start: 20100504, end: 20100504
  19. PHENYLEPHRINE [Concomitant]
     Dosage: 250 UNK, UNK
     Route: 042
     Dates: start: 20100504, end: 20100504
  20. ANIDULAFUNGIN [Concomitant]
     Indication: DRUG USE FOR UNKNOWN INDICATION
     Dosage: 100 MG, UNK
     Dates: start: 20100504
  21. PANTOPRAZOLE [Concomitant]
     Indication: DRUG USE FOR UNKNOWN INDICATION
     Dosage: 40 MG, QD
     Route: 042
     Dates: start: 20100505, end: 20100505
  22. DESMOPRESSIN ACETATE [Concomitant]
     Indication: DRUG USE FOR UNKNOWN INDICATION
     Dosage: 1 MCG, ONCE
     Route: 042
     Dates: start: 20100505, end: 20100505
  23. HYDROCORTISONE [Concomitant]
     Indication: PREMEDICATION
     Dosage: 25 MG, PRN
  24. POTASSIUM PHOSPHATE DIBASIC [Concomitant]
     Indication: ELECTROLYTE SUBSTITUTION THERAPY
     Dosage: 30 MG, UNK
     Route: 042
     Dates: start: 20100503
  25. TACROLIMUS [Concomitant]
     Indication: DRUG USE FOR UNKNOWN INDICATION
     Dosage: UNK
     Dates: start: 20100504, end: 20100504

REACTIONS (5)
  - CEREBRAL HAEMORRHAGE [None]
  - CONVULSION [None]
  - MENTAL STATUS CHANGES [None]
  - STEM CELL TRANSPLANT [None]
  - THROMBOCYTOPENIA [None]
